FAERS Safety Report 10206671 (Version 1)
Quarter: 2014Q2

REPORT INFORMATION
  Report Type: Spontaneous
  Country: AT (occurrence: AT)
  Receive Date: 20140530
  Receipt Date: 20140530
  Transmission Date: 20141212
  Serious: Yes (Hospitalization)
  Sender: FDA-Public Use
  Company Number: AT-TEVA-483565ISR

PATIENT
  Age: 63 Year
  Sex: Female
  Weight: 125 kg

DRUGS (3)
  1. METFORMIN-GLIPTIN KOMBINATIONSPRAPARAT 50/1000 MG [Suspect]
     Indication: HYPERTONIA
     Dosage: 50/1000 MG
  2. SIMVASTATIN 40 MG [Suspect]
     Indication: HYPERTONIA
  3. ENALAPRIL + HCTZ 20/12.5 MG [Suspect]
     Indication: HYPERTONIA
     Dosage: DOSAGE FORM = ENALAPRIL MALEATE 20MG + HYDROCHLOROTHIAZIDE 12.5MG

REACTIONS (7)
  - Hypertensive crisis [Recovered/Resolved]
  - Headache [Unknown]
  - Agitation [Unknown]
  - Paraesthesia [Unknown]
  - Dyspnoea [None]
  - Chest pain [None]
  - Pallor [None]
